APPROVED DRUG PRODUCT: MICONAZOLE NITRATE
Active Ingredient: MICONAZOLE NITRATE
Strength: 2%
Dosage Form/Route: CREAM;VAGINAL
Application: A074760 | Product #001
Applicant: L PERRIGO CO
Approved: May 15, 1997 | RLD: No | RS: No | Type: OTC